FAERS Safety Report 7698680-0 (Version None)
Quarter: 2011Q3

REPORT INFORMATION
  Report Type: 
  Country: None (occurrence: None)
  Receive Date: 20110819
  Receipt Date: 20110816
  Transmission Date: 20111222
  Serious: Yes (Death, Other)
  Sender: FDA-Public Use
  Company Number: PHHY2011FR73889

PATIENT
  Age: 19 Year
  Sex: Male

DRUGS (6)
  1. CYAMEMAZINE [Concomitant]
     Dosage: UNK UKN, UNK
  2. METHADONE HYDROCHLORIDE [Suspect]
     Indication: PAIN
     Dosage: 40 MG/DAY
  3. TRIMEPRAZINE TAB [Concomitant]
     Dosage: UNK UKN, UNK
  4. TROPATEPINE [Concomitant]
     Dosage: UNK UKN, UNK
  5. AMISULPRIDE [Concomitant]
     Dosage: UNK UKN, UNK
  6. ZOLPIDEM [Concomitant]
     Dosage: UNK UKN, UNK

REACTIONS (3)
  - ELECTROCARDIOGRAM QT PROLONGED [None]
  - CARDIAC ARREST [None]
  - DEATH [None]
